FAERS Safety Report 15320861 (Version 2)
Quarter: 2018Q3

REPORT INFORMATION
  Report Type: Spontaneous
  Country: JP (occurrence: JP)
  Receive Date: 20180827
  Receipt Date: 20180828
  Transmission Date: 20181010
  Serious: Yes (Hospitalization, Other)
  Sender: FDA-Public Use
  Company Number: JP-PFIZER INC-2018340455

PATIENT
  Age: 74 Year
  Sex: Female

DRUGS (16)
  1. CONIEL [Concomitant]
     Active Substance: BENIDIPINE HYDROCHLORIDE
     Dosage: UNK UNK, UNKNOWN FREQ.
     Route: 065
     Dates: end: 20180220
  2. PARIET [Concomitant]
     Active Substance: RABEPRAZOLE SODIUM
     Dosage: UNK, UNKNOWN FREQ.
     Route: 065
  3. LIPITOR [Suspect]
     Active Substance: ATORVASTATIN CALCIUM
     Dosage: 10 MG, 1X/DAY
     Route: 048
     Dates: end: 20180325
  4. RABEPRAZOLE SODIUM. [Suspect]
     Active Substance: RABEPRAZOLE SODIUM
     Dosage: 10 MG, 1X/DAY
     Route: 048
     Dates: end: 20180315
  5. SAMSCA [Suspect]
     Active Substance: TOLVAPTAN
     Dosage: 7.5 MG, 1X/DAY
     Route: 048
     Dates: start: 20180105, end: 20180111
  6. ARTIST [Suspect]
     Active Substance: CARVEDILOL
     Dosage: 5 MG, 1X/DAY
     Route: 048
     Dates: start: 20180215, end: 20180309
  7. FUROSEMIDE. [Concomitant]
     Active Substance: FUROSEMIDE
     Dosage: UNK, UNKNOWN FREQ.
     Route: 065
  8. ASPIRIN. [Suspect]
     Active Substance: ASPIRIN
     Dosage: 100 MG, 1X/DAY
     Route: 048
     Dates: start: 20171209, end: 20180315
  9. ARTIST [Suspect]
     Active Substance: CARVEDILOL
     Dosage: 5 MG, 1X/DAY
     Route: 048
     Dates: start: 20180403
  10. SAMSCA [Suspect]
     Active Substance: TOLVAPTAN
     Indication: CARDIAC FAILURE CONGESTIVE
     Dosage: 7.5 MG, 1X/DAY
     Route: 048
     Dates: start: 20171117
  11. SAMSCA [Suspect]
     Active Substance: TOLVAPTAN
     Dosage: 3.75 MG, 1X/DAY
     Route: 048
     Dates: start: 20180112, end: 20180307
  12. SAMSCA [Suspect]
     Active Substance: TOLVAPTAN
     Dosage: 7.5 MG, 1X/DAY
     Route: 048
     Dates: start: 20180308, end: 20180315
  13. LASIX [Concomitant]
     Active Substance: FUROSEMIDE
     Dosage: UNK, UNKNOWN FREQ.
     Route: 065
  14. SAILAGILE [Concomitant]
     Dosage: UNK UNK, UNKNOWN FREQ.
     Route: 065
  15. SAMSCA [Suspect]
     Active Substance: TOLVAPTAN
     Dosage: 3.75 MG, 1X/DAY
     Route: 048
     Dates: start: 20180316, end: 20180325
  16. OLMETEC [Concomitant]
     Active Substance: OLMESARTAN MEDOXOMIL
     Dosage: UNK UNK, UNKNOWN FREQ.
     Route: 048
     Dates: end: 20180302

REACTIONS (2)
  - Myocardial infarction [Unknown]
  - Hepatic function abnormal [Recovered/Resolved]

NARRATIVE: CASE EVENT DATE: 20180208
